FAERS Safety Report 4343975-1 (Version None)
Quarter: 2004Q2

REPORT INFORMATION
  Report Type: 
  Country: None (occurrence: None)
  Receive Date: 20040421
  Receipt Date: 20040421
  Transmission Date: 20050107
  Serious: Yes (Hospitalization)
  Sender: FDA-Public Use
  Company Number: None

PATIENT
  Age: 53 Year
  Sex: Female
  Weight: 39.0093 kg

DRUGS (7)
  1. DILANTIN [Suspect]
     Indication: CONVULSION
     Dosage: 100 MG PO BID [CHRONIC]
     Route: 048
  2. PLAVIX [Concomitant]
  3. LEXAPRO [Concomitant]
  4. FERROUS SULFATE TAB [Concomitant]
  5. KEPPRA [Concomitant]
  6. COUMADIN [Concomitant]
  7. PERCOCET [Concomitant]

REACTIONS (7)
  - ABASIA [None]
  - CONVULSION [None]
  - LABORATORY TEST ABNORMAL [None]
  - MUSCLE SPASMS [None]
  - MUSCLE TWITCHING [None]
  - TARDIVE DYSKINESIA [None]
  - TREATMENT NONCOMPLIANCE [None]
